FAERS Safety Report 14907875 (Version 7)
Quarter: 2024Q1

REPORT INFORMATION
  Report Type: Spontaneous
  Country: IE (occurrence: IE)
  Receive Date: 20180517
  Receipt Date: 20240206
  Transmission Date: 20240409
  Serious: Yes (Other)
  Sender: FDA-Public Use
  Company Number: PHHY2018IE008708

PATIENT
  Sex: Female

DRUGS (18)
  1. ACETAMINOPHEN [Suspect]
     Active Substance: ACETAMINOPHEN
     Indication: Foetal exposure during pregnancy
     Route: 064
  2. ACETAMINOPHEN [Suspect]
     Active Substance: ACETAMINOPHEN
     Dosage: UNK
     Route: 054
  3. DICLOFENAC [Suspect]
     Active Substance: DICLOFENAC
     Indication: Foetal exposure during pregnancy
     Route: 064
  4. DICLOFENAC [Suspect]
     Active Substance: DICLOFENAC
     Dosage: UNK
     Route: 054
  5. OMEPRAZOLE [Suspect]
     Active Substance: OMEPRAZOLE
     Indication: Foetal exposure during pregnancy
     Dosage: MATERNAL DOSE: 20 MG DAILY
     Route: 064
  6. RANITIDINE HYDROCHLORIDE [Suspect]
     Active Substance: RANITIDINE HYDROCHLORIDE
     Indication: Foetal exposure during pregnancy
     Dosage: MATERNAL DOSE: 150 MG
     Route: 064
  7. DEXMEDETOMIDINE [Suspect]
     Active Substance: DEXMEDETOMIDINE
     Indication: Foetal exposure during pregnancy
     Dosage: MATERNAL DOSE: 0.8 UG/KG OVER 10 MINUTES
     Route: 064
  8. PROPOFOL [Suspect]
     Active Substance: PROPOFOL
     Indication: Foetal exposure during pregnancy
     Dosage: MATERNAL DOSE: 180 MG
     Route: 064
  9. PROPOFOL [Suspect]
     Active Substance: PROPOFOL
     Dosage: MATERNAL DOSE: 4-6 UG/ML
     Route: 064
  10. ALPRAZOLAM [Suspect]
     Active Substance: ALPRAZOLAM
     Indication: Foetal exposure during pregnancy
     Dosage: 250 UG TWICE DAILY
     Route: 064
  11. SODIUM CITRATE [Suspect]
     Active Substance: SODIUM CITRATE
     Indication: Foetal exposure during pregnancy
     Dosage: MATERNAL DOSE: 30 ML
     Route: 064
  12. OXYGEN [Suspect]
     Active Substance: OXYGEN
     Indication: Foetal exposure during pregnancy
     Dosage: MATERNAL DOSE: 15 L/MIN
     Route: 064
  13. OXYGEN [Suspect]
     Active Substance: OXYGEN
     Dosage: MATERNAL DOSE: 50 L/MIN
     Route: 064
  14. OXYGEN [Suspect]
     Active Substance: OXYGEN
     Dosage: 50 L/MIN
     Route: 045
  15. ROCURONIUM [Suspect]
     Active Substance: ROCURONIUM BROMIDE
     Indication: Foetal exposure during pregnancy
     Dosage: MATERNAL DOSE: 1 MG/KG
     Route: 064
  16. LEVOBUPIVACAINE [Suspect]
     Active Substance: LEVOBUPIVACAINE
     Indication: Foetal exposure during pregnancy
     Dosage: MATERNAL DOSE: 30 ML
     Route: 064
  17. LIDOCAINE [Suspect]
     Active Substance: LIDOCAINE
     Indication: Foetal exposure during pregnancy
     Route: 064
  18. EPINEPHRINE [Suspect]
     Active Substance: EPINEPHRINE
     Indication: Foetal exposure during pregnancy
     Dosage: MATERNAL DOSE: 15 ML
     Route: 064

REACTIONS (3)
  - Low birth weight baby [Unknown]
  - Premature baby [Unknown]
  - Foetal exposure during pregnancy [Unknown]
